FAERS Safety Report 6305450-4 (Version None)
Quarter: 2009Q3

REPORT INFORMATION
  Report Type: 
  Country: None (occurrence: None)
  Receive Date: 20090807
  Receipt Date: 20090722
  Transmission Date: 20100115
  Serious: Yes (Other)
  Sender: FDA-Public Use
  Company Number: 2009S1013027

PATIENT
  Age: 72 Year
  Sex: Male

DRUGS (4)
  1. VALPROATE SODIUM [Suspect]
     Indication: CONVULSION
     Dosage: 200 MG;UNKNOWN;ORAL;UNKNOWN
     Route: 048
     Dates: start: 20090206, end: 20090309
  2. MOVICOL (NULYTELY) [Concomitant]
  3. PARACETAMOL (PARACETAMOL) [Concomitant]
  4. TRAMADOL HCL [Concomitant]

REACTIONS (5)
  - ANAEMIA [None]
  - HYPONATRAEMIA [None]
  - LIVER FUNCTION TEST ABNORMAL [None]
  - SOMNOLENCE [None]
  - WEIGHT DECREASED [None]
